FAERS Safety Report 4565156-9 (Version None)
Quarter: 2005Q1

REPORT INFORMATION
  Report Type: 
  Country: None (occurrence: None)
  Receive Date: 20050126
  Receipt Date: 20050113
  Transmission Date: 20050727
  Serious: Yes (Life-Threatening)
  Sender: FDA-Public Use
  Company Number: 2005013644

PATIENT
  Age: 59 Year
  Sex: Male

DRUGS (7)
  1. GABAPENTIN [Suspect]
     Indication: DIABETIC NEUROPATHY
     Dosage: 900 MG (300 MG, 3 IN 1 D), ORAL
     Route: 048
     Dates: start: 20041129
  2. OMEPRAZOLE [Suspect]
     Indication: DYSPEPSIA
     Dosage: 20 MG (20 MG, 1 IN 1 D) ,ORAL
     Route: 048
     Dates: start: 20040301
  3. POLYSPECTRAN OS (BACITRACIN, HYDROCORTISONE [Concomitant]
  4. ISOPHANE INSULIN [Concomitant]
  5. INSULIN [Concomitant]
  6. ALFUZOSIN [Concomitant]
  7. BLOOD AND RELATED PRODUCTS [Concomitant]

REACTIONS (3)
  - HYPOGLYCAEMIA [None]
  - LOSS OF CONSCIOUSNESS [None]
  - TREMOR [None]
